FAERS Safety Report 15790054 (Version 1)
Quarter: 2018Q4

REPORT INFORMATION
  Report Type: Spontaneous
  Country: US (occurrence: US)
  Receive Date: 20181213
  Receipt Date: 20181213
  Transmission Date: 20190205
  Serious: Yes (Hospitalization)
  Sender: FDA-Public Use
  Company Number: None

PATIENT
  Age: 54 Year
  Sex: Male
  Weight: 64.86 kg

DRUGS (3)
  1. DEXAMETHASONE. [Suspect]
     Active Substance: DEXAMETHASONE
     Indication: NAUSEA
     Dosage: ?          OTHER DOSE:4MG X 7 DAYS, 2MG;?
     Route: 048
     Dates: start: 20180720, end: 20180813
  2. DEXAMETHASONE. [Suspect]
     Active Substance: DEXAMETHASONE
     Indication: BRAIN OEDEMA
     Dosage: ?          OTHER DOSE:4MG X 7 DAYS, 2MG;?
     Route: 048
     Dates: start: 20180720, end: 20180813
  3. DEXAMETHASONE. [Suspect]
     Active Substance: DEXAMETHASONE
     Indication: VOMITING
     Dosage: ?          OTHER DOSE:4MG X 7 DAYS, 2MG;?
     Route: 048
     Dates: start: 20180720, end: 20180813

REACTIONS (4)
  - Headache [None]
  - Nausea [None]
  - Vomiting [None]
  - Therapy change [None]

NARRATIVE: CASE EVENT DATE: 20180812
